FAERS Safety Report 23200143 (Version 1)
Quarter: 2023Q4

REPORT INFORMATION
  Report Type: Spontaneous
  Country: US (occurrence: US)
  Receive Date: 20231118
  Receipt Date: 20231118
  Transmission Date: 20240110
  Serious: Yes (Hospitalization)
  Sender: FDA-Public Use
  Company Number: US-AMGEN-USASP2023203653

PATIENT
  Age: 4 Year
  Sex: Male

DRUGS (3)
  1. XGEVA [Suspect]
     Active Substance: DENOSUMAB
     Indication: Fibrous dysplasia of jaw
     Dosage: 2 MILLIGRAM/KG, QMO
     Route: 065
  2. CALCIUM [Concomitant]
     Active Substance: CALCIUM
     Indication: Hypocalcaemia
     Dosage: UNK
     Route: 065
  3. VITAMIN D [Concomitant]
     Active Substance: VITAMIN D NOS
     Indication: Hypocalcaemia
     Dosage: UNK
     Route: 065

REACTIONS (6)
  - Hypercalcaemia [Recovered/Resolved]
  - Bone fragmentation [Unknown]
  - Rebound effect [Unknown]
  - Torus fracture [Unknown]
  - Blood 1,25-dihydroxycholecalciferol decreased [Unknown]
  - Off label use [Unknown]
